FAERS Safety Report 8960935 (Version 1)
Quarter: 2012Q4

REPORT INFORMATION
  Report Type: 
  Country: JP (occurrence: JP)
  Receive Date: 20121212
  Receipt Date: 20121212
  Transmission Date: 20130627
  Serious: Yes (Other)
  Sender: FDA-Public Use
  Company Number: JP-PFIZER INC-2012305690

PATIENT
  Age: 58 Year
  Sex: Male

DRUGS (2)
  1. TORISEL [Suspect]
     Indication: RENAL CELL CARCINOMA
     Route: 041
  2. PREDNISOLONE [Suspect]
     Dosage: 20 mg, daily

REACTIONS (1)
  - Pneumocystis jiroveci pneumonia [Recovering/Resolving]
